FAERS Safety Report 19033911 (Version 1)
Quarter: 2021Q1

REPORT INFORMATION
  Report Type: Spontaneous
  Country: AR (occurrence: AR)
  Receive Date: 20210319
  Receipt Date: 20210319
  Transmission Date: 20210420
  Serious: Yes (Other)
  Sender: FDA-Public Use
  Company Number: AR-PFIZER INC-2021263589

PATIENT
  Age: 81 Year
  Sex: Male
  Weight: 112 kg

DRUGS (1)
  1. TRAPAX [Suspect]
     Active Substance: LORAZEPAM
     Indication: ANXIETY
     Dosage: 1 MG, DAILY, EVERY NIGHT
     Dates: start: 1991

REACTIONS (2)
  - Product use issue [Unknown]
  - COVID-19 [Unknown]

NARRATIVE: CASE EVENT DATE: 202102
